FAERS Safety Report 20280187 (Version 3)
Quarter: 2022Q1

REPORT INFORMATION
  Report Type: Report from Study
  Country: DE (occurrence: DE)
  Receive Date: 20220103
  Receipt Date: 20220110
  Transmission Date: 20220424
  Serious: Yes (Death)
  Sender: FDA-Public Use
  Company Number: DE-Merck Healthcare KGaA-9289887

PATIENT
  Age: 74 Year
  Sex: Female
  Weight: 63 kg

DRUGS (2)
  1. TEPOTINIB [Suspect]
     Active Substance: TEPOTINIB
     Indication: Non-small cell lung cancer metastatic
     Dates: start: 20210701
  2. TEPOTINIB [Suspect]
     Active Substance: TEPOTINIB
     Dates: start: 20211219

REACTIONS (1)
  - Peripheral arterial occlusive disease [Fatal]

NARRATIVE: CASE EVENT DATE: 20211219
